FAERS Safety Report 6058358-6 (Version None)
Quarter: 2009Q1

REPORT INFORMATION
  Report Type: 
  Country: None (occurrence: None)
  Receive Date: 20090130
  Receipt Date: 20081230
  Transmission Date: 20090719
  Serious: No
  Sender: FDA-Public Use
  Company Number: US-BAYER-200838266NA

PATIENT
  Age: 54 Year
  Sex: Male

DRUGS (1)
  1. CIPRO [Suspect]
     Indication: SINUSITIS
     Dosage: TOTAL DAILY DOSE: 1000 MG  UNIT DOSE: 500 MG
     Route: 048
     Dates: start: 20081103, end: 20081110

REACTIONS (2)
  - TENDERNESS [None]
  - TENDONITIS [None]
